FAERS Safety Report 7034021-X (Version None)
Quarter: 2010Q4

REPORT INFORMATION
  Report Type: 
  Country: None (occurrence: None)
  Receive Date: 20101006
  Receipt Date: 20100928
  Transmission Date: 20110411
  Serious: Yes (Hospitalization)
  Sender: FDA-Public Use
  Company Number: 013327

PATIENT
  Sex: Female
  Weight: 87 kg

DRUGS (13)
  1. CERTOLIZUMAB PEGOL (CERTOLIZUMAB PEGOL) [Suspect]
     Indication: RHEUMATOID ARTHRITIS
     Dosage: (400 MG 1X/2 WEEKS SUBCUTANEOUS)
     Route: 058
     Dates: start: 20100504, end: 20100531
  2. PREDNISOLONE [Concomitant]
  3. CELEBREX [Concomitant]
  4. TORSEMIDE [Concomitant]
  5. METOPROLOL SUCCINATE [Concomitant]
  6. DELIX /00885601/ [Concomitant]
  7. ASPIRIN [Concomitant]
  8. OXAZEPAM [Concomitant]
  9. CALCILAC KT [Concomitant]
  10. VIGANTOLETTEN /00318501/ [Concomitant]
  11. NEXIUM [Concomitant]
  12. SIMVASTATIN [Concomitant]
  13. TAUREDON [Concomitant]

REACTIONS (16)
  - ABSCESS [None]
  - BLISTER [None]
  - ERYTHEMA [None]
  - GENERAL PHYSICAL HEALTH DETERIORATION [None]
  - GLUCOSE TOLERANCE IMPAIRED [None]
  - HAEMATOCRIT DECREASED [None]
  - HAEMOGLOBIN DECREASED [None]
  - HYPERTHERMIA [None]
  - INFLAMMATION [None]
  - MEAN CELL HAEMOGLOBIN CONCENTRATION DECREASED [None]
  - NECROSIS [None]
  - OEDEMA PERIPHERAL [None]
  - RED BLOOD CELL COUNT DECREASED [None]
  - STAPHYLOCOCCAL INFECTION [None]
  - WHITE BLOOD CELL COUNT INCREASED [None]
  - WHITE BLOOD CELLS URINE POSITIVE [None]
